FAERS Safety Report 17593557 (Version 6)
Quarter: 2020Q3

REPORT INFORMATION
  Report Type: Report from Study
  Country: AR (occurrence: AR)
  Receive Date: 20200327
  Receipt Date: 20200701
  Transmission Date: 20201105
  Serious: Yes (Other)
  Sender: FDA-Public Use
  Company Number: NVSC2020AR078118

PATIENT
  Age: 77 Year
  Sex: Male
  Weight: 85 kg

DRUGS (19)
  1. INSULIN [Concomitant]
     Active Substance: INSULIN NOS
     Indication: TYPE 2 DIABETES MELLITUS
     Dosage: 25 IU IN THE MORNING AND 20 IU AT NIGHT
     Route: 065
     Dates: start: 20140101
  2. BROLUCIZUMAB. [Suspect]
     Active Substance: BROLUCIZUMAB
     Indication: DIABETIC RETINAL OEDEMA
     Dosage: CODE NOT BROKEN
     Route: 031
     Dates: start: 20190822, end: 20200205
  3. BROLUCIZUMAB. [Suspect]
     Active Substance: BROLUCIZUMAB
     Indication: DIABETIC RETINAL OEDEMA
     Dosage: CODE NOT BROKEN
     Route: 031
     Dates: start: 20200423
  4. PREDNISOLONE ACETATE. [Concomitant]
     Active Substance: PREDNISOLONE ACETATE
     Indication: UVEITIS
     Dosage: 1 %, Q2H
     Route: 065
     Dates: start: 20191124, end: 20200115
  5. LOSARTAN. [Concomitant]
     Active Substance: LOSARTAN
     Indication: HYPERTENSION
     Dosage: 50 G, BID
     Route: 048
     Dates: start: 20110101
  6. CARVEDILOL. [Concomitant]
     Active Substance: CARVEDILOL
     Indication: HYPERTENSION
     Dosage: 25 MG, BID
     Route: 065
     Dates: start: 20110101
  7. DICLOFENAC [Concomitant]
     Active Substance: DICLOFENAC
     Indication: ARTHRALGIA
     Dosage: 75 MG, UNK
     Route: 065
     Dates: start: 20200127, end: 20200203
  8. ESOMEPRAZOLE. [Concomitant]
     Active Substance: ESOMEPRAZOLE MAGNESIUM
     Indication: PROPHYLAXIS
     Dosage: 40 MG, QD
     Route: 065
     Dates: start: 20090101
  9. DUTASTERIDE. [Concomitant]
     Active Substance: DUTASTERIDE
     Indication: BENIGN PROSTATIC HYPERPLASIA
     Dosage: 0.5 MG, QD
     Route: 065
     Dates: start: 20130101
  10. TROPINE [Concomitant]
     Indication: UVEITIS
     Dosage: 1 EVERY 24 HOURS
     Route: 065
     Dates: start: 20191128, end: 20200115
  11. PREDNISOLONE ACETATE. [Concomitant]
     Active Substance: PREDNISOLONE ACETATE
     Indication: RETINAL VASCULITIS
     Dosage: 1 %, Q2H
     Route: 065
     Dates: start: 20200205, end: 20200212
  12. TROPINE [Concomitant]
     Indication: RETINAL VASCULITIS
  13. BETAMETHASONE. [Concomitant]
     Active Substance: BETAMETHASONE
     Indication: ARTHRALGIA
     Dosage: 2.63 MG, UNK
     Route: 065
     Dates: start: 20200127, end: 20200203
  14. NIMODIPINE. [Concomitant]
     Active Substance: NIMODIPINE
     Indication: HYPERTENSION
     Dosage: 30 MG, QD
     Route: 065
     Dates: start: 20110101
  15. DIMENHYDRINATE. [Concomitant]
     Active Substance: DIMENHYDRINATE
     Indication: PROPHYLAXIS
     Dosage: 25 MG, QD
     Route: 065
     Dates: start: 20110101
  16. TAMSULOSINE [Concomitant]
     Active Substance: TAMSULOSIN HYDROCHLORIDE
     Indication: BENIGN PROSTATIC HYPERPLASIA
     Dosage: 0.4 MG, QD
     Route: 065
     Dates: start: 20130101
  17. HIDROXOCOBALAMINA [Concomitant]
     Active Substance: HYDROXOCOBALAMIN
     Indication: ARTHRALGIA
     Dosage: 10 MG, UNK
     Route: 065
     Dates: start: 20200127, end: 20200203
  18. METFORMIN [Concomitant]
     Active Substance: METFORMIN HYDROCHLORIDE
     Indication: TYPE 2 DIABETES MELLITUS
     Dosage: 850 MG, BID
     Route: 065
     Dates: start: 20040101
  19. MOSAPRIDE [Concomitant]
     Active Substance: MOSAPRIDE
     Indication: PROPHYLAXIS
     Dosage: 5 MG, BID
     Route: 065
     Dates: start: 20110101

REACTIONS (2)
  - Papillitis [Recovered/Resolved]
  - Macular oedema [Recovered/Resolved]

NARRATIVE: CASE EVENT DATE: 20200205
